FAERS Safety Report 6095488-7 (Version None)
Quarter: 2009Q1

REPORT INFORMATION
  Report Type: 
  Country: None (occurrence: None)
  Receive Date: 20090227
  Receipt Date: 20080421
  Transmission Date: 20090719
  Serious: No
  Sender: FDA-Public Use
  Company Number: A0722347A

PATIENT
  Age: 47 Year
  Sex: Female
  Weight: 59.1 kg

DRUGS (1)
  1. LAMICTAL [Suspect]
     Indication: FACIAL PAIN
     Dosage: 250MG PER DAY
     Route: 048
     Dates: start: 20080301

REACTIONS (2)
  - ADNEXA UTERI PAIN [None]
  - OVARIAN CYST [None]
